FAERS Safety Report 8831634 (Version 2)
Quarter: 2012Q4

REPORT INFORMATION
  Report Type: 
  Country: JP (occurrence: JP)
  Receive Date: 20121009
  Receipt Date: 20121108
  Transmission Date: 20130627
  Serious: Yes (Other)
  Sender: FDA-Public Use
  Company Number: JP-GLAXOSMITHKLINE-B0835700A

PATIENT
  Age: 22 Year
  Sex: Female

DRUGS (6)
  1. PAXIL [Suspect]
     Indication: PREMENSTRUAL SYNDROME
     Route: 048
  2. PAXIL [Suspect]
     Indication: PREMENSTRUAL SYNDROME
     Route: 048
  3. PAXIL [Suspect]
     Indication: PREMENSTRUAL SYNDROME
     Route: 048
  4. ETHYL LOFLAZEPATE [Concomitant]
     Indication: PREMENSTRUAL SYNDROME
     Route: 048
  5. ETHYL LOFLAZEPATE [Concomitant]
     Indication: PREMENSTRUAL SYNDROME
     Route: 048
  6. CHINESE MEDICINE [Concomitant]
     Indication: PREMENSTRUAL SYNDROME
     Route: 048

REACTIONS (5)
  - Suicide attempt [Unknown]
  - Mania [Unknown]
  - Mania [Unknown]
  - Irritability [Unknown]
  - Logorrhoea [Unknown]
